FAERS Safety Report 9199117 (Version 1)
Quarter: 2013Q1

REPORT INFORMATION
  Report Type: Spontaneous
  Country: DE (occurrence: None)
  Receive Date: 20130326
  Receipt Date: 20130326
  Transmission Date: 20140127
  Serious: Yes (Other)
  Sender: FDA-Public Use
  Company Number: 2013-04804

PATIENT
  Age: 61 Year
  Sex: Female
  Weight: 90 kg

DRUGS (1)
  1. DICLOFENAC SODIUM [Suspect]
     Indication: BACK PAIN
     Dosage: 150 MG EVERY DAY 750 MG, (75 MG, 2 IN 1 DAY, ORAL)
     Dates: start: 20121107, end: 20121111

REACTIONS (2)
  - Angioedema [None]
  - Urticaria [None]
